FAERS Safety Report 5813033-5 (Version None)
Quarter: 2008Q3

REPORT INFORMATION
  Report Type: 
  Country: None (occurrence: None)
  Receive Date: 20080717
  Receipt Date: 20071107
  Transmission Date: 20090109
  Serious: No
  Sender: FDA-Public Use
  Company Number: A0691852A

PATIENT
  Age: 60 Year

DRUGS (1)
  1. NICORETTE [Suspect]

REACTIONS (4)
  - BURNING SENSATION [None]
  - CHEST PAIN [None]
  - EXPIRED DRUG ADMINISTERED [None]
  - INTENTIONAL DRUG MISUSE [None]
